FAERS Safety Report 4644533-1 (Version None)
Quarter: 2005Q2

REPORT INFORMATION
  Report Type: 
  Country: None (occurrence: None)
  Receive Date: 20050425
  Receipt Date: 20050425
  Transmission Date: 20051028
  Serious: Yes (Other)
  Sender: FDA-Public Use
  Company Number: None

PATIENT
  Age: 61 Year
  Sex: Male
  Weight: 89.8122 kg

DRUGS (9)
  1. NAFCILLIN SODIUM [Suspect]
     Indication: ARTHRITIS INFECTIVE
     Dosage: 2QM Q4H IV
     Route: 042
     Dates: start: 20050401, end: 20050420
  2. NAFCILLIN SODIUM [Suspect]
     Indication: POST PROCEDURAL COMPLICATION
     Dosage: 2QM Q4H IV
     Route: 042
     Dates: start: 20050401, end: 20050420
  3. NAFCILLIN SODIUM [Suspect]
  4. COLACE [Concomitant]
  5. CELEBREX [Concomitant]
  6. M.V.I. [Concomitant]
  7. FESO4 [Concomitant]
  8. ASPIRIN [Concomitant]
  9. PERCOCET [Concomitant]

REACTIONS (3)
  - ANGINA PECTORIS [None]
  - PRURITUS [None]
  - RASH PAPULAR [None]
